FAERS Safety Report 6213280-7 (Version None)
Quarter: 2009Q2

REPORT INFORMATION
  Report Type: 
  Country: None (occurrence: None)
  Receive Date: 20090603
  Receipt Date: 20090529
  Transmission Date: 20091009
  Serious: Yes (Other)
  Sender: FDA-Public Use
  Company Number: ES-MERCK-0905ESP00056

PATIENT
  Age: 36 Month
  Sex: Male

DRUGS (1)
  1. SINGULAIR [Suspect]
     Indication: ASTHMA
     Route: 048
     Dates: start: 20090218, end: 20090306

REACTIONS (8)
  - ABDOMINAL PAIN [None]
  - AGITATION [None]
  - CRYING [None]
  - DIARRHOEA [None]
  - INSOMNIA [None]
  - IRRITABILITY [None]
  - NIGHTMARE [None]
  - PERSONALITY CHANGE [None]
